FAERS Safety Report 16108862 (Version 1)
Quarter: 2019Q1

REPORT INFORMATION
  Report Type: Not Available
  Country: PL (occurrence: PL)
  Receive Date: 20190323
  Receipt Date: 20190323
  Transmission Date: 20190418
  Serious: Yes (Death, Other)
  Sender: FDA-Public Use
  Company Number: PL-SERVIER-S19002852

PATIENT

DRUGS (5)
  1. PEGASPARGASE [Suspect]
     Active Substance: PEGASPARGASE
     Indication: ACUTE LYMPHOCYTIC LEUKAEMIA
     Dosage: 2000 IU(1000IU/M2) ON DAY 10 OF EACH 28 DAYS CYCLE
     Route: 065
  2. DEXAMETHASON [Concomitant]
     Active Substance: DEXAMETHASONE
     Indication: ACUTE LYMPHOCYTIC LEUKAEMIA
     Dosage: 10 MG/M2 ON DAY 01-7 AND 15-21 OF EACH 28 DAYS CYCLE
     Route: 065
  3. TN  UNSPECIFIED [Concomitant]
     Active Substance: TROLNITRATE
     Indication: ACUTE LYMPHOCYTIC LEUKAEMIA
     Dosage: 30 MG/M2 AT DAY 1, 8, 15 AND 22 OF EACH 28 DAYS CYCLE
     Route: 065
  4. TN  UNSPECIFIED [Concomitant]
     Active Substance: TROLNITRATE
     Indication: ACUTE LYMPHOCYTIC LEUKAEMIA
     Dosage: 1.4 MG/M2 AT DAY 1, 8, 15 AND 22 OF EACH 28 DAYS CYCLE
     Route: 065
  5. DEPOCYTE [Concomitant]
     Active Substance: CYTARABINE
     Indication: ACUTE LYMPHOCYTIC LEUKAEMIA
     Dosage: 50 MG AT DAY 10 OF EACH 28 DAYS CYCLE
     Route: 037

REACTIONS (5)
  - Gamma-glutamyltransferase increased [Unknown]
  - Shock [Fatal]
  - Pyrexia [Fatal]
  - Abdominal pain [Fatal]
  - Blood bilirubin increased [Unknown]

NARRATIVE: CASE EVENT DATE: 2011
